FAERS Safety Report 10035451 (Version 1)
Quarter: 2014Q1

REPORT INFORMATION
  Report Type: Spontaneous
  Country: US (occurrence: US)
  Receive Date: 20140325
  Receipt Date: 20140325
  Transmission Date: 20141002
  Serious: Yes (Other)
  Sender: FDA-Public Use
  Company Number: US-PFIZER INC-2014081036

PATIENT
  Age: 39 Year
  Sex: Male
  Weight: 111.11 kg

DRUGS (8)
  1. NEURONTIN [Suspect]
     Indication: RESTLESS LEGS SYNDROME
     Dosage: 300 MG, 2X/DAY
     Route: 048
     Dates: start: 2007
  2. SEROQUEL [Concomitant]
     Dosage: UNK
  3. CYMBALTA [Concomitant]
     Dosage: UNK
  4. METFORMIN [Concomitant]
     Dosage: UNK
  5. AMLODIPINE [Concomitant]
     Dosage: UNK
  6. BYSTOLIC [Concomitant]
     Dosage: UNK
  7. LEVOTHYROXINE [Concomitant]
     Dosage: UNK
  8. LAMICTAL [Concomitant]
     Dosage: UNK

REACTIONS (8)
  - Mania [Unknown]
  - Illusion [Unknown]
  - Impulse-control disorder [Unknown]
  - Pre-existing condition improved [Unknown]
  - Therapeutic response unexpected [Unknown]
  - Drug ineffective [Unknown]
  - Epistaxis [Unknown]
  - Headache [Unknown]
